FAERS Safety Report 11101555 (Version 2)
Quarter: 2015Q2

REPORT INFORMATION
  Report Type: Not Available
  Country: IT (occurrence: IT)
  Receive Date: 20150508
  Receipt Date: 20150520
  Transmission Date: 20150821
  Serious: Yes (Other)
  Sender: FDA-Public Use
  Company Number: IT-MUNDIPHARMA DS AND PHARMACOVIGILANCE-GBR-2015-0027498

PATIENT
  Age: 69 Year
  Sex: Female

DRUGS (4)
  1. NICETILE [Concomitant]
     Active Substance: ACETYLCARNITINE HYDROCHLORIDE
     Indication: BACK PAIN
     Dosage: 500 MG, UNK
     Route: 048
     Dates: start: 20150306, end: 20150307
  2. OXYCODONE HYDROCHLORIDE. [Suspect]
     Active Substance: OXYCODONE HYDROCHLORIDE
     Indication: PAIN IN EXTREMITY
     Dosage: UNK
     Route: 048
     Dates: start: 20150306, end: 20150307
  3. ARCOXIA [Concomitant]
     Active Substance: ETORICOXIB
     Indication: BACK PAIN
     Dosage: 60 MG, UNK
     Route: 048
     Dates: start: 20150306, end: 20150307
  4. OXYCODONE HYDROCHLORIDE. [Suspect]
     Active Substance: OXYCODONE HYDROCHLORIDE
     Indication: BACK PAIN

REACTIONS (7)
  - Nausea [Recovered/Resolved]
  - Dysstasia [Recovering/Resolving]
  - Tremor [Recovering/Resolving]
  - Chest pain [Recovered/Resolved]
  - Asthenia [Recovered/Resolved]
  - Malaise [Recovered/Resolved]
  - Dizziness postural [Recovering/Resolving]

NARRATIVE: CASE EVENT DATE: 20150307
